FAERS Safety Report 4663234-7 (Version None)
Quarter: 2005Q2

REPORT INFORMATION
  Report Type: 
  Country: None (occurrence: None)
  Receive Date: 20050512
  Receipt Date: 20050503
  Transmission Date: 20051028
  Serious: Yes (Other)
  Sender: FDA-Public Use
  Company Number: GXKR2005GB00993

PATIENT
  Sex: Male

DRUGS (5)
  1. INDOMETHACIN [Suspect]
     Indication: PATENT DUCTUS ARTERIOSUS
     Dosage: 0.1 MG/KG, QD, INTRAVENOUS
     Route: 042
     Dates: start: 20040708, end: 20040708
  2. VANCOMYCIN [Suspect]
     Indication: INFECTION
     Dosage: SEE IMAGE
     Route: 042
     Dates: start: 20040706, end: 20040708
  3. ZIDOVUDINE [Concomitant]
  4. CEFOTAXIME SODIUM [Concomitant]
  5. FLUCONAZOLE [Concomitant]

REACTIONS (6)
  - BLOOD CREATININE INCREASED [None]
  - BLOOD UREA INCREASED [None]
  - DRUG INTERACTION [None]
  - DRUG LEVEL INCREASED [None]
  - UNDERDOSE [None]
  - URINE OUTPUT DECREASED [None]
